FAERS Safety Report 8445564-6 (Version None)
Quarter: 2012Q2

REPORT INFORMATION
  Report Type: 
  Country: None (occurrence: None)
  Receive Date: 20120618
  Receipt Date: 20120607
  Transmission Date: 20120825
  Serious: Yes (Hospitalization)
  Sender: FDA-Public Use
  Company Number: US-ASTRAZENECA-2008UW18252

PATIENT
  Age: 68 Year
  Sex: Female
  Weight: 49.9 kg

DRUGS (9)
  1. ALBUTEROL [Concomitant]
  2. PULMICORT FLEXHALER [Suspect]
     Route: 055
     Dates: start: 20020101
  3. PULMICORT FLEXHALER [Suspect]
     Route: 055
     Dates: start: 20120101
  4. LEVOTHYROXINE SODIUM [Concomitant]
  5. PULMICORT FLEXHALER [Suspect]
     Indication: ASTHMA
     Route: 055
  6. HYDROCHLOROTHIAZIDE [Concomitant]
  7. METAMUCIL-2 [Concomitant]
  8. PULMICORT FLEXHALER [Suspect]
     Route: 055
  9. CALCIUM AND VITAMIN D [Concomitant]

REACTIONS (8)
  - INCREASED UPPER AIRWAY SECRETION [None]
  - CHEST PAIN [None]
  - DYSPHONIA [None]
  - OFF LABEL USE [None]
  - WHEEZING [None]
  - DYSGEUSIA [None]
  - COUGH [None]
  - ASTHMA [None]
